FAERS Safety Report 5693180-1 (Version None)
Quarter: 2008Q2

REPORT INFORMATION
  Report Type: 
  Country: None (occurrence: None)
  Receive Date: 20080403
  Receipt Date: 20080326
  Transmission Date: 20081010
  Serious: Yes (Hospitalization)
  Sender: FDA-Public Use
  Company Number: FR-NOVOPROD-273560

PATIENT
  Age: 38 Year
  Sex: Female

DRUGS (2)
  1. NOVORAPID [Suspect]
     Indication: DIABETES MELLITUS
     Dates: start: 20080201
  2. TARDYFERON                         /00023503/ [Concomitant]

REACTIONS (1)
  - CYTOLYTIC HEPATITIS [None]
